FAERS Safety Report 7842397-6 (Version None)
Quarter: 2011Q4

REPORT INFORMATION
  Report Type: 
  Country: None (occurrence: None)
  Receive Date: 20111024
  Receipt Date: 20111024
  Transmission Date: 20120403
  Serious: Yes (Other)
  Sender: FDA-Public Use
  Company Number: None

PATIENT
  Sex: Male
  Weight: 63.05 kg

DRUGS (2)
  1. RISPERDAL [Suspect]
     Indication: AGGRESSION
     Dosage: 1MG TWICE Q 12 ORAL
     Route: 048
  2. RISPERDAL [Suspect]
     Indication: ANXIETY
     Dosage: 1MG TWICE Q 12 ORAL
     Route: 048

REACTIONS (5)
  - AGGRESSION [None]
  - CONDITION AGGRAVATED [None]
  - DRUG INEFFECTIVE [None]
  - TIC [None]
  - PRODUCT SUBSTITUTION ISSUE [None]
